FAERS Safety Report 16191656 (Version 3)
Quarter: 2019Q4

REPORT INFORMATION
  Report Type: Spontaneous
  Country: JP (occurrence: JP)
  Receive Date: 20190412
  Receipt Date: 20191029
  Transmission Date: 20200122
  Serious: Yes (Other)
  Sender: FDA-Public Use
  Company Number: JP-ASTRAZENECA-2019SE55045

PATIENT
  Age: 60 Year
  Sex: Female

DRUGS (1)
  1. LYNPARZA [Suspect]
     Active Substance: OLAPARIB
     Indication: OVARIAN CANCER
     Route: 048
     Dates: start: 20181022, end: 20190327

REACTIONS (3)
  - Pneumonitis [Unknown]
  - Malignant neoplasm progression [Unknown]
  - Lung disorder [Unknown]

NARRATIVE: CASE EVENT DATE: 20190311
